FAERS Safety Report 8974722 (Version 1)
Quarter: 2012Q4

REPORT INFORMATION
  Report Type: 
  Country: US (occurrence: US)
  Receive Date: 20121219
  Receipt Date: 20121219
  Transmission Date: 20130627
  Serious: No
  Sender: FDA-Public Use
  Company Number: US-AMGEN-USASP2012055730

PATIENT
  Sex: Male

DRUGS (3)
  1. XGEVA [Suspect]
     Indication: METASTASES TO BONE
     Dosage: 120 mg, q4wk
  2. XGEVA [Suspect]
     Indication: PROSTATE CANCER METASTATIC
  3. ANDROGENS [Concomitant]

REACTIONS (2)
  - Bone pain [Unknown]
  - Paraesthesia [Unknown]
